FAERS Safety Report 10071945 (Version 1)
Quarter: 2014Q2

REPORT INFORMATION
  Report Type: Report from Study
  Country: US (occurrence: US)
  Receive Date: 20140411
  Receipt Date: 20140411
  Transmission Date: 20141212
  Serious: Yes (Hospitalization)
  Sender: FDA-Public Use
  Company Number: US-ROCHE-1376149

PATIENT
  Sex: 0

DRUGS (2)
  1. VEMURAFENIB [Suspect]
     Indication: HAIRY CELL LEUKAEMIA
     Route: 065
     Dates: start: 20130716
  2. VEMURAFENIB [Suspect]
     Route: 065
     Dates: start: 20140318

REACTIONS (1)
  - Rectal haemorrhage [Unknown]
